FAERS Safety Report 7437931-4 (Version None)
Quarter: 2011Q2

REPORT INFORMATION
  Report Type: 
  Country: None (occurrence: None)
  Receive Date: 20110426
  Receipt Date: 20110421
  Transmission Date: 20111010
  Serious: Yes (Hospitalization)
  Sender: FDA-Public Use
  Company Number: GB-PFIZER INC-2011081891

PATIENT
  Age: 65 Year
  Sex: Male
  Weight: 96.3 kg

DRUGS (5)
  1. INFLIXIMAB [Suspect]
     Indication: COLITIS ULCERATIVE
     Dosage: 200 MG, UNK
     Route: 042
     Dates: start: 20110311, end: 20110311
  2. ADCAL-D3 [Concomitant]
     Indication: HYPOCALCAEMIA
     Dosage: 2 DF, 1X/DAY
     Route: 048
     Dates: start: 20110308
  3. HYDROCORTISONE SODIUM SUCCINATE [Suspect]
     Indication: COLITIS ULCERATIVE
     Dosage: 400 MG, UNK
     Route: 042
     Dates: start: 20110308, end: 20110314
  4. MESALAZINE [Concomitant]
     Indication: COLITIS ULCERATIVE
     Dosage: 1 G, 4X/DAY
     Route: 048
     Dates: start: 20110307
  5. MESALAZINE [Concomitant]
     Dosage: 1 G, 1X/DAY
     Route: 054
     Dates: start: 20110308

REACTIONS (1)
  - PNEUMONIA [None]
